FAERS Safety Report 24947801 (Version 1)
Quarter: 2025Q1

REPORT INFORMATION
  Report Type: Report from Study
  Country: US (occurrence: US)
  Receive Date: 20250210
  Receipt Date: 20250210
  Transmission Date: 20250408
  Serious: Yes (Hospitalization, Other)
  Sender: EXELIXIS
  Company Number: US-EXELIXIS-EXL-2025-004636

PATIENT
  Sex: Male

DRUGS (2)
  1. CABOMETYX [Suspect]
     Active Substance: CABOZANTINIB S-MALATE
     Indication: Renal cancer
     Dosage: 40 MG, QD
     Dates: start: 20231026
  2. CABOMETYX [Suspect]
     Active Substance: CABOZANTINIB S-MALATE

REACTIONS (6)
  - Gastric ulcer [Unknown]
  - COVID-19 [Unknown]
  - Diarrhoea [Unknown]
  - Dehydration [Unknown]
  - Syncope [Unknown]
  - Inappropriate schedule of product administration [Unknown]
